FAERS Safety Report 21813280 (Version 2)
Quarter: 2023Q1

REPORT INFORMATION
  Report Type: Report from Study
  Country: FR (occurrence: FR)
  Receive Date: 20230103
  Receipt Date: 20230122
  Transmission Date: 20230417
  Serious: Yes (Death, Life-Threatening, Hospitalization, Other)
  Sender: FDA-Public Use
  Company Number: FR-CHUBR-202201003

PATIENT
  Age: 71 Year
  Sex: Female

DRUGS (2)
  1. RIVAROXABAN [Suspect]
     Active Substance: RIVAROXABAN
     Indication: Product used for unknown indication
     Dosage: 20 MG
     Route: 048
     Dates: start: 20210316, end: 20221018
  2. RIVAROXABAN [Suspect]
     Active Substance: RIVAROXABAN
     Dosage: 20 MG
     Route: 048
     Dates: end: 20221203

REACTIONS (5)
  - Acute kidney injury [Fatal]
  - Shock haemorrhagic [Not Recovered/Not Resolved]
  - Haemorrhage [Not Recovered/Not Resolved]
  - Hip arthroplasty [Recovered/Resolved]
  - Medical device site joint infection [Not Recovered/Not Resolved]

NARRATIVE: CASE EVENT DATE: 20221018
